FAERS Safety Report 18085937 (Version 1)
Quarter: 2020Q3

REPORT INFORMATION
  Report Type: Other
  Country: CN (occurrence: CN)
  Receive Date: 20200729
  Receipt Date: 20200729
  Transmission Date: 20201103
  Serious: Yes (Other)
  Sender: FDA-Public Use
  Company Number: CN-ROCHE-2647929

PATIENT

DRUGS (6)
  1. PEMETREXED. [Suspect]
     Active Substance: PEMETREXED
     Indication: LUNG ADENOCARCINOMA
     Dosage: (STRENGTH 0.2 G/VIAL) PLUS NORMAL SALINE (NS)100 ML (INTRAVENOUS (IV) DRIP IN 30 MINUTES, DAY1 OF 21
     Route: 041
  2. CISPLATIN. [Suspect]
     Active Substance: CISPLATIN
     Indication: LUNG ADENOCARCINOMA
     Dosage: (STRENGTH: 30 MG/VIAL) PLUS NS 250 ML (IV DRIP IN MORE THAN 2 HOURS, D1 TO D3 OF 21 DAYS CYCLE
     Route: 041
  3. FOLIC ACID. [Concomitant]
     Active Substance: FOLIC ACID
     Route: 048
  4. BEVACIZUMAB. [Suspect]
     Active Substance: BEVACIZUMAB
     Indication: LUNG ADENOCARCINOMA
     Dosage: PLUS NS 250 ML (IV DRIP) DAY1 OF 21 DAYS CYCLE
     Route: 041
  5. LOBAPLATIN [Suspect]
     Active Substance: LOBAPLATIN
     Indication: LUNG ADENOCARCINOMA
     Dosage: (STRENGTH 10 MG/VIAL) PLUS 5% GLUCOSE INJECTION 250 ML (IV DRIP IN 2 HOURS, DAY1
     Route: 041
  6. DEXAMETHASONE. [Concomitant]
     Active Substance: DEXAMETHASONE
     Route: 048

REACTIONS (10)
  - Platelet count decreased [Unknown]
  - Anaemia [Unknown]
  - Transaminases increased [Unknown]
  - Myelosuppression [Unknown]
  - Gastrointestinal disorder [Unknown]
  - Nausea [Unknown]
  - Asthenia [Unknown]
  - Renal impairment [Unknown]
  - Neutrophil count decreased [Unknown]
  - Vomiting [Unknown]
